FAERS Safety Report 19447085 (Version 1)
Quarter: 2021Q2

REPORT INFORMATION
  Report Type: Spontaneous
  Country: US (occurrence: US)
  Receive Date: 20210621
  Receipt Date: 20210621
  Transmission Date: 20210717
  Serious: No
  Sender: FDA-Public Use
  Company Number: None

PATIENT
  Age: 58 Year
  Sex: Male
  Weight: 106 kg

DRUGS (1)
  1. SEMAGLUTIDE (SEMAGLUTIDE 0.5MG/0.375ML INJ,SOLN,PEN,1.5ML) [Suspect]
     Active Substance: SEMAGLUTIDE
     Indication: DIABETES MELLITUS
     Route: 058
     Dates: start: 20210404, end: 20210508

REACTIONS (6)
  - Abdominal distension [None]
  - Abdominal pain [None]
  - Diarrhoea [None]
  - Urine output increased [None]
  - Acute kidney injury [None]
  - Hypophagia [None]

NARRATIVE: CASE EVENT DATE: 20210504
